FAERS Safety Report 4762674-5 (Version None)
Quarter: 2005Q3

REPORT INFORMATION
  Report Type: 
  Country: None (occurrence: None)
  Receive Date: 20050907
  Receipt Date: 20050825
  Transmission Date: 20060218
  Serious: Yes (Life-Threatening)
  Sender: FDA-Public Use
  Company Number: FR-JNJFOC-20050900867

PATIENT
  Age: 73 Year
  Sex: Female

DRUGS (5)
  1. TRAMADOL HCL [Suspect]
     Route: 048
  2. TOPALGIC [Suspect]
     Route: 048
  3. REPAGLINIDE [Suspect]
     Route: 048
  4. BACTRIM DS [Concomitant]
     Route: 065
  5. BACTRIM DS [Concomitant]
     Indication: STAPHYLOCOCCAL INFECTION
     Route: 065

REACTIONS (1)
  - HYPOGLYCAEMIA [None]
